FAERS Safety Report 13738686 (Version 1)
Quarter: 2017Q3

REPORT INFORMATION
  Report Type: Spontaneous
  Country: US (occurrence: US)
  Receive Date: 20170710
  Receipt Date: 20170710
  Transmission Date: 20171127
  Serious: Yes (Hospitalization)
  Sender: FDA-Public Use
  Company Number: US-SAOL THERAPEUTICS-2017SAO00207

PATIENT
  Age: 33 Year
  Sex: Male
  Weight: 59.86 kg

DRUGS (10)
  1. LAMICTAL [Concomitant]
     Active Substance: LAMOTRIGINE
  2. CENTRUM MULTIVITAMIN [Concomitant]
  3. CLARITIN [Concomitant]
     Active Substance: LORATADINE
  4. MIRALAX [Concomitant]
     Active Substance: POLYETHYLENE GLYCOL 3350
  5. KEPPRA [Concomitant]
     Active Substance: LEVETIRACETAM
  6. LIORESAL [Suspect]
     Active Substance: BACLOFEN
     Indication: BRAIN INJURY
     Dosage: 550 ?G, \DAY
     Route: 037
  7. NUTREN [Concomitant]
     Route: 048
  8. BENZOYL PEROXIDE. [Concomitant]
     Active Substance: BENZOYL PEROXIDE
     Route: 061
  9. VITAMIN D3 [Concomitant]
     Active Substance: CHOLECALCIFEROL
  10. LIORESAL [Suspect]
     Active Substance: BACLOFEN
     Indication: MUSCLE SPASTICITY
     Dosage: UNK
     Dates: start: 199908

REACTIONS (7)
  - Blood bicarbonate decreased [None]
  - Muscle spasticity [Recovering/Resolving]
  - Device battery issue [Unknown]
  - Blood sodium decreased [Unknown]
  - Blood chloride decreased [None]
  - Irritability [Recovered/Resolved]
  - Drug withdrawal syndrome [None]

NARRATIVE: CASE EVENT DATE: 20170124
